FAERS Safety Report 5164386-5 (Version None)
Quarter: 2006Q4

REPORT INFORMATION
  Report Type: 
  Country: None (occurrence: None)
  Receive Date: 20061205
  Receipt Date: 20061026
  Transmission Date: 20070319
  Serious: Yes (Other)
  Sender: FDA-Public Use
  Company Number: US-AMGEN-US198250

PATIENT
  Sex: Female
  Weight: 26.1 kg

DRUGS (8)
  1. ETANERCEPT [Suspect]
     Indication: JUVENILE ARTHRITIS
     Route: 058
     Dates: start: 20040512, end: 20061025
  2. METHOTREXATE [Concomitant]
     Dates: start: 20040225
  3. FOLATE SODIUM [Concomitant]
     Dates: start: 20040225
  4. NAPROSYN [Concomitant]
     Dates: start: 20031229
  5. PRILOSEC [Concomitant]
     Dates: start: 20050824
  6. ZYRTEC [Concomitant]
  7. CALCIUM CARBONATE [Concomitant]
     Dates: start: 20040225
  8. MIRALAX [Concomitant]
     Dates: start: 20050112

REACTIONS (3)
  - CONDITION AGGRAVATED [None]
  - CROHN'S DISEASE [None]
  - UVEITIS [None]
